FAERS Safety Report 10213308 (Version 1)
Quarter: 2014Q2

REPORT INFORMATION
  Report Type: Spontaneous
  Country: AU (occurrence: AU)
  Receive Date: 20140603
  Receipt Date: 20140603
  Transmission Date: 20141212
  Serious: Yes (Hospitalization)
  Sender: FDA-Public Use
  Company Number: AU-ACCORD-023935

PATIENT
  Age: 31 Year
  Sex: Male

DRUGS (3)
  1. FLUOROURACIL [Suspect]
     Indication: COLORECTAL CANCER STAGE III
     Dosage: 5-FLUOROURACIL 400 MG/M2 AND 5-FLUOROURACIL 2400 MG/M2 OVER 46 HOURS
  2. OXALIPLATIN [Concomitant]
     Indication: COLORECTAL CANCER
  3. LEUCOVORIN [Concomitant]
     Indication: COLORECTAL CANCER

REACTIONS (1)
  - Myocardial infarction [Recovered/Resolved]
